FAERS Safety Report 17177481 (Version 3)
Quarter: 2020Q2

REPORT INFORMATION
  Report Type: Spontaneous
  Country: BR (occurrence: BR)
  Receive Date: 20191219
  Receipt Date: 20200623
  Transmission Date: 20200713
  Serious: Yes (Other)
  Sender: FDA-Public Use
  Company Number: BR-GLAXOSMITHKLINE-BR2017GSK050809

PATIENT
  Age: 45 Year
  Sex: Female
  Weight: 69 kg

DRUGS (5)
  1. REUQUINOL (HYDROXYCHLOROQUINE SULFATE) [Concomitant]
     Active Substance: HYDROXYCHLOROQUINE SULFATE
     Indication: PRODUCT USED FOR UNKNOWN INDICATION
     Dosage: UNK
  2. VITAMIN B12 [Concomitant]
     Active Substance: CYANOCOBALAMIN
     Indication: PRODUCT USED FOR UNKNOWN INDICATION
     Dosage: UNK
  3. BENLYSTA [Suspect]
     Active Substance: BELIMUMAB
     Indication: SYSTEMIC LUPUS ERYTHEMATOSUS
     Dosage: 720 MG, UNK
     Route: 042
     Dates: start: 20151010
  4. DEFLAZACORT [Concomitant]
     Active Substance: DEFLAZACORT
     Indication: PRODUCT USED FOR UNKNOWN INDICATION
     Dosage: UNK
  5. VITAMIN D [Concomitant]
     Active Substance: VITAMIN D NOS
     Indication: PRODUCT USED FOR UNKNOWN INDICATION
     Dosage: UNK

REACTIONS (22)
  - Lymphoma [Recovered/Resolved]
  - Weight fluctuation [Recovered/Resolved]
  - Onychomycosis [Not Recovered/Not Resolved]
  - Pain [Recovered/Resolved]
  - Lip swelling [Recovered/Resolved]
  - Tinea infection [Not Recovered/Not Resolved]
  - Inflammation [Recovered/Resolved]
  - Spinal pain [Recovered/Resolved]
  - Postoperative wound infection [Recovered/Resolved]
  - Hypoaesthesia oral [Recovered/Resolved]
  - Lymphoma operation [Recovered/Resolved]
  - Product dose omission [Recovered/Resolved]
  - Nocturnal dyspnoea [Recovered/Resolved]
  - Inappropriate schedule of product administration [Recovered/Resolved]
  - Oral discomfort [Unknown]
  - Throat irritation [Recovered/Resolved]
  - Overdose [Unknown]
  - Circumstance or information capable of leading to medication error [Recovered/Resolved]
  - Sinusitis [Recovered/Resolved]
  - Influenza [Unknown]
  - Swelling face [Unknown]
  - Nasal congestion [Unknown]

NARRATIVE: CASE EVENT DATE: 20191030
